FAERS Safety Report 15215473 (Version 1)
Quarter: 2018Q3

REPORT INFORMATION
  Report Type: Spontaneous
  Country: RU (occurrence: RU)
  Receive Date: 20180730
  Receipt Date: 20180730
  Transmission Date: 20181010
  Serious: Yes (Death, Other)
  Sender: FDA-Public Use
  Company Number: RU-BAUSCH-BL-2018-020290

PATIENT
  Age: 3 Day
  Sex: Male
  Weight: 3.8 kg

DRUGS (1)
  1. AMMONUL [Suspect]
     Active Substance: SODIUM BENZOATE\SODIUM PHENYLACETATE
     Indication: ORNITHINE TRANSCARBAMOYLASE DEFICIENCY
     Dosage: AMMONUL BOLUS?7.5 ML
     Route: 065
     Dates: start: 20180719

REACTIONS (3)
  - Cardiac arrest [Unknown]
  - Lactic acidosis [Unknown]
  - Multiple organ dysfunction syndrome [Fatal]

NARRATIVE: CASE EVENT DATE: 20180720
